FAERS Safety Report 25099507 (Version 2)
Quarter: 2025Q3

REPORT INFORMATION
  Report Type: Report from Study
  Country: EU (occurrence: EU)
  Receive Date: 20250320
  Receipt Date: 20250818
  Transmission Date: 20251021
  Serious: Yes (Other)
  Sender: CSL BEHRING
  Company Number: EU-BEH-2025199532

PATIENT
  Sex: Male

DRUGS (3)
  1. VELTASSA [Suspect]
     Active Substance: PATIROMER
     Indication: Renin-angiotensin system inhibition
     Route: 065
     Dates: start: 20230731
  2. VELTASSA [Suspect]
     Active Substance: PATIROMER
     Indication: Hyperkalaemia
     Route: 065
     Dates: start: 20230809
  3. VELTASSA [Suspect]
     Active Substance: PATIROMER
     Route: 065
     Dates: start: 20230906, end: 20230920

REACTIONS (4)
  - Metabolic acidosis [Recovered/Resolved]
  - Renal impairment [Recovered/Resolved]
  - Cardiac dysfunction [Recovered/Resolved]
  - Hypercalcaemia [Recovered/Resolved]

NARRATIVE: CASE EVENT DATE: 20230906
